FAERS Safety Report 7286106-0 (Version None)
Quarter: 2011Q1

REPORT INFORMATION
  Report Type: 
  Country: None (occurrence: None)
  Receive Date: 20110210
  Receipt Date: 20110203
  Transmission Date: 20110831
  Serious: Yes (Other)
  Sender: FDA-Public Use
  Company Number: CA-JNJCH-2011003081

PATIENT
  Age: 36 Year
  Sex: Female
  Weight: 90.7 kg

DRUGS (3)
  1. ROLAIDS [Suspect]
     Indication: DYSPEPSIA
     Dosage: TEXT:2-3 TABLETS THEN 15-20 TABLETS DAILY
     Route: 048
  2. ROLAIDS [Suspect]
     Dosage: TEXT:1-2 TABLETS THEN 20 TABLETS DAILY
     Route: 048
  3. RABEPRAZOLE SODIUM [Concomitant]
     Indication: DYSPEPSIA
     Dosage: TEXT:UNKNOWN
     Route: 065

REACTIONS (5)
  - LIVER INJURY [None]
  - DRUG INEFFECTIVE [None]
  - INCORRECT DRUG ADMINISTRATION DURATION [None]
  - PRODUCT QUALITY ISSUE [None]
  - OVERDOSE [None]
